FAERS Safety Report 8957019 (Version 2)
Quarter: 2013Q1

REPORT INFORMATION
  Report Type: Spontaneous
  Country: US (occurrence: US)
  Receive Date: 20121210
  Receipt Date: 20130115
  Transmission Date: 20140127
  Serious: No
  Sender: FDA-Public Use
  Company Number: US-ROXANE LABORATORIES, INC.-2012-RO-02494RO

PATIENT
  Sex: Female

DRUGS (4)
  1. IPRATROPIUM BROMIDE [Suspect]
     Indication: PULMONARY CONGESTION
     Route: 045
     Dates: start: 201209
  2. IPRATROPIUM BROMIDE [Suspect]
     Indication: COUGH
  3. PATANASE [Concomitant]
     Indication: PULMONARY CONGESTION
     Route: 045
     Dates: start: 201209
  4. NASONEX [Concomitant]
     Indication: PULMONARY CONGESTION
     Route: 045
     Dates: start: 201209

REACTIONS (2)
  - Drug ineffective for unapproved indication [Not Recovered/Not Resolved]
  - Product quality issue [Not Recovered/Not Resolved]
